FAERS Safety Report 16445626 (Version 1)
Quarter: 2019Q2

REPORT INFORMATION
  Report Type: Spontaneous
  Country: HU (occurrence: HU)
  Receive Date: 20190618
  Receipt Date: 20190618
  Transmission Date: 20190711
  Serious: Yes (Other)
  Sender: FDA-Public Use
  Company Number: HU-MYLANLABS-2019M1055906

PATIENT
  Age: 80 Year
  Sex: Female

DRUGS (2)
  1. GLYCERYL TRINITRATE [Suspect]
     Active Substance: NITROGLYCERIN
     Indication: CHEST PAIN
     Dosage: UNK
     Route: 065
  2. ACETYLSALICYLIC ACID [Concomitant]
     Active Substance: ASPIRIN
     Indication: CHEST PAIN
     Dosage: UNK
     Route: 065

REACTIONS (3)
  - Arterial stenosis [Recovered/Resolved]
  - Left ventricular dysfunction [Recovered/Resolved]
  - Stress cardiomyopathy [Recovered/Resolved]
